FAERS Safety Report 25878969 (Version 2)
Quarter: 2025Q4

REPORT INFORMATION
  Report Type: Spontaneous
  Country: US (occurrence: US)
  Receive Date: 20251003
  Receipt Date: 20251219
  Transmission Date: 20260118
  Serious: No
  Sender: Harrow Health
  Company Number: US-HARROW-HAR-2025-US-01081

PATIENT
  Age: 73 Year
  Sex: Female

DRUGS (3)
  1. VEVYE [Suspect]
     Active Substance: CYCLOSPORINE
     Route: 047
     Dates: start: 20250906, end: 20250924
  2. SINGULAIR [Concomitant]
     Active Substance: MONTELUKAST SODIUM
  3. PANTOPRAZOLE [Concomitant]
     Active Substance: PANTOPRAZOLE

REACTIONS (2)
  - Eye irritation [Not Recovered/Not Resolved]
  - Eye pain [Not Recovered/Not Resolved]

NARRATIVE: CASE EVENT DATE: 20250910
